FAERS Safety Report 5828976-6 (Version None)
Quarter: 2008Q3

REPORT INFORMATION
  Report Type: 
  Country: None (occurrence: None)
  Receive Date: 20080731
  Receipt Date: 20080722
  Transmission Date: 20090109
  Serious: Yes (Hospitalization)
  Sender: FDA-Public Use
  Company Number: PHHO2008US09189

PATIENT
  Sex: Male

DRUGS (4)
  1. TASIGNA [Suspect]
     Indication: CHRONIC MYELOID LEUKAEMIA
     Dosage: 400 MG, BID
     Route: 048
     Dates: start: 20080327
  2. OMEPRAZOLE [Concomitant]
  3. LUTEIN [Concomitant]
  4. CENTRUM [Concomitant]

REACTIONS (1)
  - ABDOMINAL PAIN UPPER [None]
